FAERS Safety Report 8226242-5 (Version None)
Quarter: 2012Q1

REPORT INFORMATION
  Report Type: 
  Country: None (occurrence: None)
  Receive Date: 20120307
  Receipt Date: 20100510
  Transmission Date: 20120608
  Serious: No
  Sender: FDA-Public Use
  Company Number: PHHY2010US28608

PATIENT
  Sex: Male

DRUGS (1)
  1. AFINITOR [Suspect]
     Indication: NEOPLASM MALIGNANT
     Dosage: 10 MG, DAILY, ORAL
     Route: 048

REACTIONS (5)
  - ASTHENIA [None]
  - TESTICULAR DISORDER [None]
  - ONYCHOCLASIS [None]
  - LIBIDO DECREASED [None]
  - ACNE [None]
